FAERS Safety Report 4727192-9 (Version None)
Quarter: 2005Q3

REPORT INFORMATION
  Report Type: 
  Country: None (occurrence: None)
  Receive Date: 20050726
  Receipt Date: 20050726
  Transmission Date: 20060218
  Serious: Yes (Other)
  Sender: FDA-Public Use
  Company Number: None

PATIENT
  Age: 66 Year
  Sex: Male
  Weight: 94.8 kg

DRUGS (7)
  1. EZETIMIBE [Suspect]
  2. METOPROLOL TARTRATE [Concomitant]
  3. OMEPRAZOLE [Concomitant]
  4. EZETIMIBE [Concomitant]
  5. ISOSORBIDE DINITRATE [Concomitant]
  6. ALBUTEROL SULFATE AND IPRATROPIUM BROMIDE [Concomitant]
  7. NITROGLYCERIN [Concomitant]

REACTIONS (1)
  - MYALGIA [None]
